FAERS Safety Report 18430433 (Version 3)
Quarter: 2020Q4

REPORT INFORMATION
  Report Type: Spontaneous
  Country: FR (occurrence: FR)
  Receive Date: 20201027
  Receipt Date: 20201105
  Transmission Date: 20210114
  Serious: Yes (Other)
  Sender: FDA-Public Use
  Company Number: FR-ROCHE-2702127

PATIENT
  Age: 55 Year
  Sex: Male

DRUGS (4)
  1. OCREVUS [Suspect]
     Active Substance: OCRELIZUMAB
     Indication: RELAPSING-REMITTING MULTIPLE SCLEROSIS
     Dosage: D1
     Route: 042
     Dates: start: 20190404
  2. OCREVUS [Suspect]
     Active Substance: OCRELIZUMAB
     Dosage: M6
     Route: 042
     Dates: start: 20191024
  3. OCREVUS [Suspect]
     Active Substance: OCRELIZUMAB
     Dosage: M12
     Route: 042
     Dates: start: 20200424
  4. OCREVUS [Suspect]
     Active Substance: OCRELIZUMAB
     Dosage: D15
     Route: 042
     Dates: start: 20190417

REACTIONS (2)
  - Multiple sclerosis relapse [Unknown]
  - Oesophageal carcinoma [Unknown]

NARRATIVE: CASE EVENT DATE: 20201022
